FAERS Safety Report 5243539-1 (Version None)
Quarter: 2007Q1

REPORT INFORMATION
  Report Type: 
  Country: None (occurrence: None)
  Receive Date: 20070222
  Receipt Date: 20070209
  Transmission Date: 20070707
  Serious: Yes (Other)
  Sender: FDA-Public Use
  Company Number: PHEH2007US01925

PATIENT
  Age: 55 Year
  Sex: Male

DRUGS (1)
  1. ENABLEX [Suspect]
     Indication: HYPERTONIC BLADDER
     Dates: start: 20070208, end: 20070208

REACTIONS (3)
  - DRY MOUTH [None]
  - DYSPNOEA [None]
  - PHARYNGEAL OEDEMA [None]
